FAERS Safety Report 25994927 (Version 3)
Quarter: 2025Q4

REPORT INFORMATION
  Report Type: Spontaneous
  Country: JP (occurrence: JP)
  Receive Date: 20251104
  Receipt Date: 20251219
  Transmission Date: 20260117
  Serious: Yes (Death, Other)
  Sender: JOHNSON AND JOHNSON
  Company Number: JP-JNJFOC-20251036864

PATIENT
  Age: 70 Year
  Sex: Female

DRUGS (1)
  1. REMICADE [Suspect]
     Active Substance: INFLIXIMAB
     Indication: Colitis
     Dosage: 5 MILLIGRAM/KILOGRAM
     Route: 041

REACTIONS (10)
  - Death [Fatal]
  - Vulval neoplasm [Unknown]
  - Metastases to bone [Unknown]
  - Ascites [Unknown]
  - Hepatomegaly [Unknown]
  - Off label use [Unknown]
  - Pleural effusion [Unknown]
  - Oedema [Unknown]
  - Decreased appetite [Unknown]
  - Back pain [Unknown]
